FAERS Safety Report 8791019 (Version 1)
Quarter: 2012Q4

REPORT INFORMATION
  Report Type: Spontaneous
  Country: JP (occurrence: None)
  Receive Date: 20120910
  Receipt Date: 20120910
  Transmission Date: 20130627
  Serious: Yes (Other)
  Sender: FDA-Public Use
  Company Number: CIP-2012-00306

PATIENT

DRUGS (2)
  1. EPIRUBICIN [Suspect]
     Indication: INFLAMMATORY BREAST CANCER
     Dosage: 60 mg/m2, every three weeks
  2. DOCETAXEL [Suspect]
     Dosage: 60 mg/m2, every three weeks

REACTIONS (1)
  - Fatigue [None]
